FAERS Safety Report 19229029 (Version 2)
Quarter: 2021Q3

REPORT INFORMATION
  Report Type: Spontaneous
  Country: US (occurrence: US)
  Receive Date: 20210506
  Receipt Date: 20210726
  Transmission Date: 20211014
  Serious: Yes (Hospitalization)
  Sender: FDA-Public Use
  Company Number: US-TEVA-2021-US-1907207

PATIENT
  Age: 59 Year
  Sex: Male

DRUGS (1)
  1. METHYLPREDNISOLONE. [Suspect]
     Active Substance: METHYLPREDNISOLONE
     Indication: CHONDROCALCINOSIS PYROPHOSPHATE
     Dosage: METHYLPREDNISOLONE MULTIDOSE PACK (40 MG, TAPERED FOR 14 DAYS)
     Route: 048

REACTIONS (3)
  - Septic arthritis neisserial [Recovering/Resolving]
  - Osteomyelitis acute [Recovering/Resolving]
  - Gonococcal infection [Recovering/Resolving]
